FAERS Safety Report 6590987-3 (Version None)
Quarter: 2010Q1

REPORT INFORMATION
  Report Type: 
  Country: None (occurrence: None)
  Receive Date: 20100219
  Receipt Date: 20100210
  Transmission Date: 20100710
  Serious: Yes (Hospitalization)
  Sender: FDA-Public Use
  Company Number: TR-ELI_LILLY_AND_COMPANY-TR201002002920

PATIENT
  Age: 66 Year
  Sex: Male

DRUGS (4)
  1. HUMALOG MIX 50/50 [Suspect]
     Indication: DIABETES MELLITUS
     Dosage: 34 IU, EACH MORNING
     Route: 058
     Dates: start: 20080101
  2. HUMALOG MIX 50/50 [Suspect]
     Dosage: 34 IU, OTHER
     Route: 058
     Dates: start: 20080101
  3. HUMALOG MIX 50/50 [Suspect]
     Dosage: 34 IU, EACH EVENING
     Route: 058
     Dates: start: 20080101
  4. DIGOXIN [Concomitant]
     Indication: CARDIAC DISORDER
     Dosage: UNK, DAILY (1/D)

REACTIONS (1)
  - ASTHMA [None]
